FAERS Safety Report 8782470 (Version 2)
Quarter: 2014Q3

REPORT INFORMATION
  Report Type: Spontaneous
  Country: US (occurrence: US)
  Receive Date: 20120913
  Receipt Date: 20140715
  Transmission Date: 20150326
  Serious: Yes (Hospitalization, Other)
  Sender: FDA-Public Use
  Company Number: US-009507513-2011SP035870

PATIENT
  Sex: Female
  Weight: 86.18 kg

DRUGS (2)
  1. NUVARING [Suspect]
     Active Substance: ETHINYL ESTRADIOL\ETONOGESTREL
     Indication: CONTRACEPTION
     Route: 067
     Dates: start: 200807, end: 20090805
  2. NUVARING [Suspect]
     Active Substance: ETHINYL ESTRADIOL\ETONOGESTREL
     Indication: MENSTRUAL CYCLE MANAGEMENT

REACTIONS (17)
  - Headache [Not Recovered/Not Resolved]
  - Neck pain [Recovering/Resolving]
  - Deep vein thrombosis [Unknown]
  - Anxiety [Recovering/Resolving]
  - Haemangioma of liver [Unknown]
  - Arthralgia [Unknown]
  - Pulmonary embolism [Unknown]
  - Nasal septum deviation [Unknown]
  - Sleep apnoea syndrome [Not Recovered/Not Resolved]
  - Obstructive airways disorder [Unknown]
  - Nasal disorder [Unknown]
  - Depression [Not Recovered/Not Resolved]
  - Nephropathy [Unknown]
  - Sinus disorder [Unknown]
  - Migraine [Recovering/Resolving]
  - Cardiac disorder [Unknown]
  - Vertigo positional [Recovering/Resolving]

NARRATIVE: CASE EVENT DATE: 200810
